FAERS Safety Report 21045001 (Version 3)
Quarter: 2022Q3

REPORT INFORMATION
  Report Type: Report from Study
  Country: FR (occurrence: FR)
  Receive Date: 20220705
  Receipt Date: 20220729
  Transmission Date: 20221026
  Serious: Yes (Other)
  Sender: FDA-Public Use
  Company Number: FR-GILEAD-2022-0568622

PATIENT
  Age: 43 Year
  Sex: Female
  Weight: 60 kg

DRUGS (5)
  1. SACITUZUMAB GOVITECAN [Suspect]
     Active Substance: SACITUZUMAB GOVITECAN
     Indication: Triple negative breast cancer
     Dosage: 10 MG/KG (C1D1 AND C1D7 (INSTEAD OF D8: PLACES AVILABILITY IN DAY HOSPITAL))
     Route: 065
     Dates: start: 20220125, end: 20220131
  2. SACITUZUMAB GOVITECAN [Suspect]
     Active Substance: SACITUZUMAB GOVITECAN
     Dosage: 10 MG/KG (C2D1 AND C2D7 (INSTEAD OF D8: PLACES AVILABILITY IN DAY HOSPITAL))
     Route: 065
     Dates: start: 20220214, end: 20220221
  3. SACITUZUMAB GOVITECAN [Suspect]
     Active Substance: SACITUZUMAB GOVITECAN
     Dosage: 10 MG/KG (C3D1 AND C3D8)
     Route: 065
     Dates: start: 20220307, end: 20220314
  4. SACITUZUMAB GOVITECAN [Suspect]
     Active Substance: SACITUZUMAB GOVITECAN
     Dosage: 10 MG/KG (C4D1 AND C4D8)
     Route: 065
     Dates: start: 20220411, end: 20220419
  5. SACITUZUMAB GOVITECAN [Suspect]
     Active Substance: SACITUZUMAB GOVITECAN
     Dosage: 10 MG/KG (C5D1 AND C5D8)
     Route: 065
     Dates: start: 20220503, end: 20220510

REACTIONS (3)
  - Disease progression [Unknown]
  - Inappropriate schedule of product administration [Unknown]
  - Off label use [Unknown]

NARRATIVE: CASE EVENT DATE: 20220525
